FAERS Safety Report 5075880-X (Version None)
Quarter: 2006Q3

REPORT INFORMATION
  Report Type: 
  Country: None (occurrence: None)
  Receive Date: 20060807
  Receipt Date: 20060807
  Transmission Date: 20061208
  Serious: Yes (Hospitalization)
  Sender: FDA-Public Use
  Company Number: None

PATIENT
  Age: 71 Year
  Sex: Male
  Weight: 98.4 kg

DRUGS (7)
  1. WARFARIN SODIUM [Suspect]
     Dosage: 7.5MG  QDBY MOUTH
     Route: 048
     Dates: start: 20041021, end: 20051129
  2. NOVOLIN (INSULIN, REGULAR) [Concomitant]
  3. ZOCOR [Concomitant]
  4. METOPROLOL TARTRATE [Concomitant]
  5. LISINOPRIL [Concomitant]
  6. ASPIRIN [Concomitant]
  7. ACETAMINOPHEN [Concomitant]

REACTIONS (1)
  - INTERNATIONAL NORMALISED RATIO INCREASED [None]
